FAERS Safety Report 6203337-9 (Version None)
Quarter: 2009Q2

REPORT INFORMATION
  Report Type: 
  Country: None (occurrence: None)
  Receive Date: 20090522
  Receipt Date: 20090522
  Transmission Date: 20091009
  Serious: Yes (Other)
  Sender: FDA-Public Use
  Company Number: None

PATIENT
  Age: 26 Year
  Sex: Female
  Weight: 68.0396 kg

DRUGS (1)
  1. PROAIR HFA [Suspect]

REACTIONS (7)
  - ASTHMA [None]
  - CONDITION AGGRAVATED [None]
  - DEVICE FAILURE [None]
  - DRUG INEFFECTIVE [None]
  - NERVOUSNESS [None]
  - PARANOIA [None]
  - PRODUCT QUALITY ISSUE [None]
